FAERS Safety Report 23599343 (Version 1)
Quarter: 2024Q1

REPORT INFORMATION
  Report Type: Spontaneous
  Country: US (occurrence: US)
  Receive Date: 20240306
  Receipt Date: 20240306
  Transmission Date: 20240410
  Serious: No
  Sender: FDA-Public Use
  Company Number: US-PTC THERAPEUTICS INC.-US-2023PTC001559

PATIENT
  Sex: Male
  Weight: 32.653 kg

DRUGS (2)
  1. EMFLAZA [Suspect]
     Active Substance: DEFLAZACORT
     Indication: Duchenne muscular dystrophy
     Dosage: UNK
     Route: 065
     Dates: start: 20231121
  2. EMFLAZA [Suspect]
     Active Substance: DEFLAZACORT
     Indication: Becker^s muscular dystrophy
     Dosage: 1 ML, QD
     Route: 048
     Dates: start: 20230609

REACTIONS (1)
  - Weight increased [Not Recovered/Not Resolved]
